FAERS Safety Report 19742644 (Version 2)
Quarter: 2023Q2

REPORT INFORMATION
  Report Type: Report from Study
  Country: US (occurrence: US)
  Receive Date: 20210824
  Receipt Date: 20230517
  Transmission Date: 20230722
  Serious: Yes (Hospitalization)
  Sender: FDA-Public Use
  Company Number: US-TAKEDA-US201727396

PATIENT
  Age: 58 Year
  Sex: Female
  Weight: 99 kg

DRUGS (17)
  1. TEDUGLUTIDE [Suspect]
     Active Substance: TEDUGLUTIDE
     Indication: Short-bowel syndrome
     Dosage: 5.1 MILLIGRAM, QD
     Route: 042
     Dates: start: 20140424, end: 20141121
  2. TEDUGLUTIDE [Suspect]
     Active Substance: TEDUGLUTIDE
     Indication: Short-bowel syndrome
     Dosage: 5.1 MILLIGRAM, QD
     Route: 042
     Dates: start: 20140424, end: 20141121
  3. TEDUGLUTIDE [Suspect]
     Active Substance: TEDUGLUTIDE
     Indication: Short-bowel syndrome
     Dosage: 5.1 MILLIGRAM, QD
     Route: 042
     Dates: start: 20140424, end: 20141121
  4. TEDUGLUTIDE [Suspect]
     Active Substance: TEDUGLUTIDE
     Indication: Short-bowel syndrome
     Dosage: 5.1 MILLIGRAM, QD
     Route: 042
     Dates: start: 20140424, end: 20141121
  5. TEDUGLUTIDE [Suspect]
     Active Substance: TEDUGLUTIDE
     Dosage: 5 MILLIGRAM, QD
     Route: 042
     Dates: start: 20150609, end: 20151110
  6. TEDUGLUTIDE [Suspect]
     Active Substance: TEDUGLUTIDE
     Dosage: 5 MILLIGRAM, QD
     Route: 042
     Dates: start: 20150609, end: 20151110
  7. TEDUGLUTIDE [Suspect]
     Active Substance: TEDUGLUTIDE
     Dosage: 5 MILLIGRAM, QD
     Route: 042
     Dates: start: 20150609, end: 20151110
  8. TEDUGLUTIDE [Suspect]
     Active Substance: TEDUGLUTIDE
     Dosage: 5 MILLIGRAM, QD
     Route: 042
     Dates: start: 20150609, end: 20151110
  9. TRIAMCINOLONE ACETONIDE [Concomitant]
     Active Substance: TRIAMCINOLONE ACETONIDE
     Indication: Rash
     Route: 065
  10. TRAZODONE [Concomitant]
     Active Substance: TRAZODONE HYDROCHLORIDE
     Indication: Insomnia
     Route: 065
  11. FLUCONAZOLE [Concomitant]
     Active Substance: FLUCONAZOLE
     Indication: Bacteraemia
     Route: 065
  12. DAPTOMYCIN [Concomitant]
     Active Substance: DAPTOMYCIN
     Indication: Bacteraemia
     Route: 065
  13. LORAZEPAM [Concomitant]
     Active Substance: LORAZEPAM
     Indication: Anxiety
     Dosage: 1 MILLIGRAM, Q6HR
     Route: 042
     Dates: start: 20201101, end: 20201103
  14. LORAZEPAM [Concomitant]
     Active Substance: LORAZEPAM
     Indication: Agitation
  15. HYDROMORPHONE [Concomitant]
     Active Substance: HYDROMORPHONE
     Indication: Pain
     Dosage: 0.50 MILLIGRAM
     Route: 042
     Dates: start: 20201031, end: 20201103
  16. HALOPERIDOL LACTATE [Concomitant]
     Active Substance: HALOPERIDOL LACTATE
     Indication: Agitation
     Dosage: 2 MILLIGRAM, Q6HR
     Route: 042
     Dates: start: 20201029, end: 20201030
  17. DIPHENHYDRAMINE [Concomitant]
     Active Substance: DIPHENHYDRAMINE
     Indication: Premedication
     Dosage: 25 MILLIGRAM
     Route: 048
     Dates: start: 20201028, end: 20201028

REACTIONS (1)
  - Fatigue [Recovered/Resolved]

NARRATIVE: CASE EVENT DATE: 20170525
